FAERS Safety Report 13212336 (Version 17)
Quarter: 2018Q2

REPORT INFORMATION
  Report Type: Report from Study
  Country: SE (occurrence: SE)
  Receive Date: 20170210
  Receipt Date: 20180516
  Transmission Date: 20180711
  Serious: Yes (Hospitalization)
  Sender: FDA-Public Use
  Company Number: SE-SA-2016SA006187

PATIENT
  Age: 32 Year
  Sex: Female
  Weight: 60 kg

DRUGS (11)
  1. LEMTRADA [Suspect]
     Active Substance: ALEMTUZUMAB
     Indication: MULTIPLE SCLEROSIS RELAPSE
     Route: 041
     Dates: start: 20151214, end: 20151218
  2. RANITIDINE. [Concomitant]
     Active Substance: RANITIDINE
     Indication: PROPHYLAXIS
     Route: 048
     Dates: start: 20151213, end: 20151218
  3. PARACETAMOL [Concomitant]
     Active Substance: ACETAMINOPHEN
     Indication: PROPHYLAXIS
     Route: 048
     Dates: start: 20151214, end: 20151218
  4. LORATADINE. [Concomitant]
     Active Substance: LORATADINE
     Indication: PROPHYLAXIS
     Route: 048
     Dates: start: 20151213, end: 20151218
  5. SOLU-MEDROL [Concomitant]
     Active Substance: METHYLPREDNISOLONE SODIUM SUCCINATE
     Indication: PROPHYLAXIS
     Route: 042
     Dates: start: 20151214, end: 20151216
  6. ZOMIG [Concomitant]
     Active Substance: ZOLMITRIPTAN
     Indication: DRUG THERAPY
     Route: 045
     Dates: start: 20071122
  7. IBUMETIN [Concomitant]
     Active Substance: IBUPROFEN
     Route: 048
     Dates: start: 20151214, end: 20151218
  8. OMEPRAZOLE. [Concomitant]
     Active Substance: OMEPRAZOLE
     Route: 048
     Dates: start: 20151218
  9. LEMTRADA [Suspect]
     Active Substance: ALEMTUZUMAB
     Indication: MULTIPLE SCLEROSIS RELAPSE
     Route: 041
     Dates: start: 20161219, end: 20161221
  10. ACICLOVIR [Concomitant]
     Active Substance: ACYCLOVIR
     Indication: PROPHYLAXIS
     Route: 048
     Dates: start: 20151214, end: 20160112
  11. PROBIOTICA [Concomitant]
     Active Substance: PROBIOTICS NOS
     Route: 048
     Dates: start: 20160307

REACTIONS (29)
  - Nail infection [Recovered/Resolved]
  - Thyroid cyst [Not Recovered/Not Resolved]
  - Headache [Recovered/Resolved]
  - Nausea [Recovered/Resolved]
  - Diarrhoea [Recovered/Resolved]
  - Pruritus generalised [Recovered/Resolved]
  - Tooth infection [Recovered/Resolved]
  - Rash pruritic [Not Recovered/Not Resolved]
  - Dry skin [Recovered/Resolved]
  - Headache [Recovered/Resolved]
  - Pregnancy [Recovered/Resolved]
  - Toothache [Recovered/Resolved]
  - Nasopharyngitis [Not Recovered/Not Resolved]
  - Eczema [Recovered/Resolved]
  - Abdominal discomfort [Recovered/Resolved]
  - Headache [Recovered/Resolved]
  - Back pain [Recovered/Resolved]
  - Abdominal pain upper [Recovered/Resolved]
  - Nasopharyngitis [Recovered/Resolved]
  - Dry skin [Not Recovered/Not Resolved]
  - Nasopharyngitis [Recovered/Resolved]
  - Weight decreased [Recovered/Resolved]
  - Thrombocytopenia [Recovered/Resolved]
  - Neutropenia [Recovered/Resolved]
  - Tachycardia [Recovered/Resolved]
  - Nasopharyngitis [Recovered/Resolved]
  - Blood iron decreased [Not Recovered/Not Resolved]
  - Nasopharyngitis [Recovered/Resolved]
  - Headache [Not Recovered/Not Resolved]

NARRATIVE: CASE EVENT DATE: 20151214
